FAERS Safety Report 21626449 (Version 1)
Quarter: 2022Q4

REPORT INFORMATION
  Report Type: Spontaneous
  Country: US (occurrence: None)
  Receive Date: 20221122
  Receipt Date: 20221122
  Transmission Date: 20230113
  Serious: No
  Sender: FDA-Public Use
  Company Number: US-ROCHE-2954055

PATIENT
  Sex: Female

DRUGS (14)
  1. LUCENTIS [Suspect]
     Active Substance: RANIBIZUMAB
     Indication: Retinal vein occlusion
     Dosage: ONGOING: YES
     Route: 065
  2. LUCENTIS [Suspect]
     Active Substance: RANIBIZUMAB
     Dosage: ONGOING: NO
     Route: 065
     Dates: start: 20200814
  3. CANDESARTAN CILEXETIL [Concomitant]
     Active Substance: CANDESARTAN CILEXETIL
     Indication: Blood pressure measurement
     Dosage: EVERY 12 HOURS, ONE IN THE MORNING AND ONE IN THE EVENING ;ONGOING: YES
     Dates: start: 2006
  4. ATENOLOL [Concomitant]
     Active Substance: ATENOLOL
     Indication: Hypertension
     Dosage: ONGOING: YES
     Dates: start: 202008
  5. FLUTICASONE [Concomitant]
     Active Substance: FLUTICASONE
     Indication: Hypersensitivity
     Dosage: ONGOING: NO
     Dates: start: 2010, end: 202107
  6. FLUTICASONE [Concomitant]
     Active Substance: FLUTICASONE
     Indication: Rhinitis
  7. ALPRAZOLAM [Concomitant]
     Active Substance: ALPRAZOLAM
     Indication: Anxiety
     Dosage: TOWARDS THE EVENING ;ONGOING: YES
     Dates: start: 2006
  8. OMEGA-3 FATTY ACIDS [Concomitant]
     Active Substance: OMEGA-3 FATTY ACIDS
  9. GARLIC [Concomitant]
     Active Substance: GARLIC
  10. VITAMIN C [Concomitant]
     Active Substance: ASCORBIC ACID
  11. ERGOCALCIFEROL [Concomitant]
     Active Substance: ERGOCALCIFEROL
  12. PROBIOTICS NOS [Concomitant]
     Active Substance: PROBIOTICS NOS
  13. ZINC [Concomitant]
     Active Substance: ZINC
     Dosage: THREE TIMES A WEEK
  14. NEOMEDICOUGH [Concomitant]

REACTIONS (3)
  - Intercepted medication error [Unknown]
  - Vision blurred [Unknown]
  - Product dose omission issue [Unknown]
